FAERS Safety Report 11318965 (Version 1)
Quarter: 2015Q3

REPORT INFORMATION
  Report Type: Spontaneous
  Country: US (occurrence: US)
  Receive Date: 20150729
  Receipt Date: 20150729
  Transmission Date: 20151125
  Serious: No
  Sender: FDA-Public Use
  Company Number: US-009507513-1507USA012807

PATIENT

DRUGS (1)
  1. NEXPLANON [Suspect]
     Active Substance: ETONOGESTREL
     Dosage: STRENGTH: 68MG; DOSE/FREQUENCY: 1 ROD/3 YEARS
     Route: 059
     Dates: end: 201507

REACTIONS (2)
  - Device kink [Recovered/Resolved]
  - No adverse event [Unknown]
